FAERS Safety Report 20742680 (Version 1)
Quarter: 2022Q2

REPORT INFORMATION
  Report Type: Spontaneous
  Country: US (occurrence: US)
  Receive Date: 20220424
  Receipt Date: 20220424
  Transmission Date: 20220720
  Serious: No
  Sender: FDA-Public Use
  Company Number: US-SA-SAC20220418000863

PATIENT
  Age: 57 Year
  Sex: Male

DRUGS (1)
  1. DUPIXENT [Suspect]
     Active Substance: DUPILUMAB
     Indication: Dermatitis atopic
     Dosage: 300 MG, QOW
     Route: 058
     Dates: start: 20180331

REACTIONS (9)
  - Osteoarthritis [Unknown]
  - Tenderness [Unknown]
  - Eyelid irritation [Recovered/Resolved]
  - Injection site nodule [Recovered/Resolved]
  - Rash pruritic [Recovering/Resolving]
  - Dry skin [Unknown]
  - Injection site swelling [Recovered/Resolved]
  - Rash [Unknown]
  - Intentional dose omission [Unknown]

NARRATIVE: CASE EVENT DATE: 20180101
